FAERS Safety Report 16257032 (Version 1)
Quarter: 2019Q2

REPORT INFORMATION
  Report Type: Report from Study
  Country: NL (occurrence: NL)
  Receive Date: 20190430
  Receipt Date: 20190430
  Transmission Date: 20190711
  Serious: Yes (Hospitalization)
  Sender: FDA-Public Use
  Company Number: NL-ROCHE-2306542

PATIENT
  Age: 59 Year
  Sex: Female

DRUGS (5)
  1. CYCLOPHOSPHAMIDE. [Suspect]
     Active Substance: CYCLOPHOSPHAMIDE
     Indication: BREAST CANCER
     Dosage: DATE OF MOST CURRENT TREATMENT OR ADMINISTRATION OF CYCLOPHOSPHAMIDE: 29/MAR/2019
     Route: 042
     Dates: start: 20190201
  2. SPIRONOLACTONE. [Concomitant]
     Active Substance: SPIRONOLACTONE
     Route: 065
  3. ATEZOLIZUMAB. [Suspect]
     Active Substance: ATEZOLIZUMAB
     Indication: BREAST CANCER
     Dosage: ON DAY 1 AND DAY 15 FOR 28 DAYS?DATE OF MOST CURRENT TREATMENT OR ADMINISTRATION TO ATEZOLIZUMAB: 12
     Route: 041
     Dates: start: 20190201
  4. CARBOPLATIN. [Suspect]
     Active Substance: CARBOPLATIN
     Indication: BREAST CANCER
     Dosage: DATE OF MOST CURRENT TREATMENT OR ADMINISTRATION OF CARBOPLATIN: 29/MAR/2019
     Route: 042
  5. METOPROLOL. [Concomitant]
     Active Substance: METOPROLOL
     Route: 065
     Dates: start: 20190401

REACTIONS (1)
  - Cardiac failure [Recovering/Resolving]

NARRATIVE: CASE EVENT DATE: 20190411
